FAERS Safety Report 5223524-6 (Version None)
Quarter: 2007Q1

REPORT INFORMATION
  Report Type: 
  Country: None (occurrence: None)
  Receive Date: 20070125
  Receipt Date: 20070115
  Transmission Date: 20070707
  Serious: Yes (Hospitalization)
  Sender: FDA-Public Use
  Company Number: TAP2006Q02069

PATIENT
  Age: 77 Year
  Sex: Female
  Weight: 56.6 kg

DRUGS (3)
  1. PREVACID [Suspect]
     Indication: GASTROOESOPHAGEAL REFLUX DISEASE
     Dosage: 30 MG, 1 IN 1 D, ORAL
     Route: 048
     Dates: start: 19990101
  2. NORVASC [Concomitant]
  3. FOSAMAX [Concomitant]

REACTIONS (1)
  - HIP FRACTURE [None]
